FAERS Safety Report 5810900-3 (Version None)
Quarter: 2008Q3

REPORT INFORMATION
  Report Type: 
  Country: None (occurrence: None)
  Receive Date: 20080716
  Receipt Date: 20080704
  Transmission Date: 20090109
  Serious: Yes (Other)
  Sender: FDA-Public Use
  Company Number: PHEH2008US05996

PATIENT
  Sex: Male

DRUGS (4)
  1. METOPROLOL TARTRATE [Suspect]
  2. DILANTIN [Suspect]
  3. ACETYLSALICYLIC ACID SRT [Suspect]
  4. SIMVASTATIN [Suspect]

REACTIONS (4)
  - CONVULSION [None]
  - FEELING ABNORMAL [None]
  - MEMORY IMPAIRMENT [None]
  - STENT PLACEMENT [None]
